FAERS Safety Report 4504023-3 (Version None)
Quarter: 2004Q3

REPORT INFORMATION
  Report Type: 
  Country: None (occurrence: None)
  Receive Date: 20040927
  Receipt Date: 20040628
  Transmission Date: 20050211
  Serious: No
  Sender: FDA-Public Use
  Company Number: USA040671373

PATIENT
  Age: 13 Year
  Sex: Male
  Weight: 50 kg

DRUGS (2)
  1. STRATTERA [Suspect]
     Indication: ATTENTION DEFICIT/HYPERACTIVITY DISORDER
     Dosage: 40 MG IN THE MORNING
  2. METADATE CD [Concomitant]

REACTIONS (3)
  - PHARYNGOLARYNGEAL PAIN [None]
  - RETCHING [None]
  - THROAT IRRITATION [None]
